FAERS Safety Report 4954959-4 (Version None)
Quarter: 2006Q1

REPORT INFORMATION
  Report Type: 
  Country: None (occurrence: None)
  Receive Date: 20060322
  Receipt Date: 20060314
  Transmission Date: 20060701
  Serious: Yes (Other)
  Sender: FDA-Public Use
  Company Number: TPA2005A01628

PATIENT
  Age: 28 Year
  Sex: Female
  Weight: 62.1428 kg

DRUGS (13)
  1. ROZEREM [Suspect]
     Indication: SLEEP DISORDER
     Dosage: 8 MG, QHS, PER ORAL
     Route: 048
     Dates: start: 20051124
  2. SEROQUEL [Suspect]
     Indication: ANXIETY
     Dosage: 50 MG, EVERY 8 HRS AND 100 MG AT HS, PER ORAL
     Route: 048
     Dates: start: 20051128, end: 20051206
  3. LEXAPRO [Suspect]
     Indication: ANXIETY
     Dosage: 10 MG, 1 IN 1 D, PER ORAL
     Route: 048
     Dates: start: 20051124, end: 20051206
  4. FLEXERIL [Suspect]
     Indication: BACK PAIN
     Dosage: 10 MG, QAM + QHS
     Dates: start: 20051205, end: 20051206
  5. DIFLUCAN [Concomitant]
  6. CLONIDINE [Concomitant]
  7. VALIUM [Concomitant]
  8. VISTARIL [Concomitant]
  9. TRAZODONE HCL [Concomitant]
  10. IBUPROFEN [Concomitant]
  11. TORADOL [Concomitant]
  12. KEFLEX [Concomitant]
  13. TIGAN [Concomitant]

REACTIONS (6)
  - ARRHYTHMIA [None]
  - LONG QT SYNDROME [None]
  - PALPITATIONS [None]
  - SINUS TACHYCARDIA [None]
  - SUPRAVENTRICULAR EXTRASYSTOLES [None]
  - VERTIGO [None]
